FAERS Safety Report 19036390 (Version 1)
Quarter: 2021Q1

REPORT INFORMATION
  Report Type: Spontaneous
  Country: US (occurrence: US)
  Receive Date: 20210319
  Receipt Date: 20210319
  Transmission Date: 20210420
  Serious: Yes (Other)
  Sender: FDA-Public Use
  Company Number: None

PATIENT
  Age: 19 Year
  Sex: Female
  Weight: 63 kg

DRUGS (7)
  1. ESCITALOPRAM [Concomitant]
     Active Substance: ESCITALOPRAM OXALATE
  2. DEXTROAMPHETAMINER ER [Concomitant]
  3. PREGABALIN. [Concomitant]
     Active Substance: PREGABALIN
  4. CULTERELLE [Concomitant]
  5. DEXTROAMPHET SACCHARAT, AMPHET ASPARTATE, DEXTROAMPHET SULFATE AND AMPHET SULFAT [Suspect]
     Active Substance: AMPHETAMINE ASPARTATE\AMPHETAMINE SULFATE\DEXTROAMPHETAMINE SACCHARATE\DEXTROAMPHETAMINE SULFATE
     Indication: ATTENTION DEFICIT HYPERACTIVITY DISORDER
     Dosage: ?          QUANTITY:60 CAPSULE(S);?
     Route: 048
     Dates: start: 20210225, end: 20210303
  6. CALCIUM [Concomitant]
     Active Substance: CALCIUM
  7. VITAMIN D [Concomitant]
     Active Substance: VITAMIN D NOS

REACTIONS (4)
  - Mental disorder [None]
  - Depression [None]
  - Apathy [None]
  - Drug ineffective [None]
